FAERS Safety Report 23987745 (Version 3)
Quarter: 2024Q4

REPORT INFORMATION
  Report Type: Report from Study
  Country: US (occurrence: US)
  Receive Date: 20240619
  Receipt Date: 20241029
  Transmission Date: 20250115
  Serious: Yes (Hospitalization, Other)
  Sender: ABBVIE
  Company Number: US-ABBVIE-5804002

PATIENT
  Age: 85 Year
  Sex: Male
  Weight: 79 kg

DRUGS (3)
  1. IMBRUVICA [Suspect]
     Active Substance: IBRUTINIB
     Indication: Non-Hodgkin^s lymphoma
     Dosage: FORM STRENGTH: 420 MG
     Route: 048
     Dates: start: 2019
  2. IMBRUVICA [Suspect]
     Active Substance: IBRUTINIB
     Indication: Non-Hodgkin^s lymphoma
     Dosage: DECREASED DOSE?FORM STRENGTH: 280 MG
     Route: 048
  3. IMBRUVICA [Suspect]
     Active Substance: IBRUTINIB
     Indication: Non-Hodgkin^s lymphoma
     Route: 048

REACTIONS (7)
  - Myocardial infarction [Unknown]
  - Skin cancer [Not Recovered/Not Resolved]
  - Atrial fibrillation [Recovered/Resolved]
  - Vomiting [Unknown]
  - Fall [Unknown]
  - Spinal fracture [Unknown]
  - Emotional disorder [Unknown]

NARRATIVE: CASE EVENT DATE: 20240501
